FAERS Safety Report 7602003-2 (Version None)
Quarter: 2011Q3

REPORT INFORMATION
  Report Type: 
  Country: None (occurrence: None)
  Receive Date: 20110711
  Receipt Date: 20110601
  Transmission Date: 20111222
  Serious: Yes (Hospitalization, Other)
  Sender: FDA-Public Use
  Company Number: US-BAXTER-2010BH003439

PATIENT
  Age: 59 Year
  Sex: Male
  Weight: 95 kg

DRUGS (24)
  1. HEPARIN SODIUM 5,000 UNITS IN DEXTROSE 5% [Suspect]
     Indication: DEEP VEIN THROMBOSIS
     Route: 042
     Dates: start: 20071110, end: 20071113
  2. HEPARIN SODIUM 5,000 UNITS IN DEXTROSE 5% [Suspect]
     Route: 042
     Dates: start: 20071214, end: 20071201
  3. PROCHLORPERAZINE TAB [Concomitant]
     Indication: PRODUCT USED FOR UNKNOWN INDICATION
     Route: 065
  4. OMEPRAZOLE [Concomitant]
     Indication: PRODUCT USED FOR UNKNOWN INDICATION
     Route: 065
  5. MILRINONE [Concomitant]
     Indication: PRODUCT USED FOR UNKNOWN INDICATION
     Route: 042
  6. HEPARIN SODIUM 5,000 UNITS IN DEXTROSE 5% [Suspect]
     Indication: PROPHYLAXIS
     Route: 042
     Dates: start: 20071110, end: 20071113
  7. NORVASC [Concomitant]
     Indication: PRODUCT USED FOR UNKNOWN INDICATION
     Route: 065
  8. IBUPROFEN (ADVIL) [Concomitant]
     Indication: PRODUCT USED FOR UNKNOWN INDICATION
     Route: 065
  9. PROPOFOL [Concomitant]
     Indication: PRODUCT USED FOR UNKNOWN INDICATION
     Route: 042
  10. HEPARIN SODIUM 5,000 UNITS IN DEXTROSE 5% [Suspect]
     Route: 042
     Dates: start: 20071214, end: 20071201
  11. INSULIN [Concomitant]
     Indication: PRODUCT USED FOR UNKNOWN INDICATION
     Route: 042
  12. HEPARIN SYRINGE [Suspect]
     Indication: MITRAL VALVE REPLACEMENT
     Route: 065
     Dates: start: 20071031, end: 20071031
  13. TYLENOL-500 [Concomitant]
     Indication: PRODUCT USED FOR UNKNOWN INDICATION
     Route: 065
  14. HEPARIN SODIUM INJECTION [Suspect]
     Indication: PROPHYLAXIS
     Route: 058
     Dates: start: 20071109, end: 20071110
  15. HEPARIN SODIUM INJECTION [Suspect]
     Route: 058
     Dates: start: 20080502, end: 20080505
  16. COUMADIN [Suspect]
     Indication: ATRIAL FIBRILLATION
     Route: 065
  17. TRAMADOL HCL [Concomitant]
     Indication: PRODUCT USED FOR UNKNOWN INDICATION
     Route: 065
  18. HEPARIN SYRINGE [Suspect]
     Indication: AORTIC VALVE REPLACEMENT
     Route: 065
     Dates: start: 20071031, end: 20071031
  19. STARLIX [Concomitant]
     Indication: PRODUCT USED FOR UNKNOWN INDICATION
     Route: 065
  20. AMBIEN [Concomitant]
     Indication: PRODUCT USED FOR UNKNOWN INDICATION
     Route: 065
  21. CEFUROXIME [Concomitant]
     Indication: PROPHYLAXIS
     Route: 042
  22. HEPARIN SODIUM INJECTION [Suspect]
     Route: 058
     Dates: start: 20071202, end: 20071212
  23. FUROSEMIDE [Concomitant]
     Indication: PRODUCT USED FOR UNKNOWN INDICATION
     Route: 065
  24. FENTANYL [Concomitant]
     Indication: PRODUCT USED FOR UNKNOWN INDICATION
     Route: 042

REACTIONS (23)
  - ANAEMIA [None]
  - POSTOPERATIVE ILEUS [None]
  - TOXIC ENCEPHALOPATHY [None]
  - DEMENTIA [None]
  - PLATELET COUNT DECREASED [None]
  - BEHAVIOURAL AND PSYCHIATRIC SYMPTOMS OF DEMENTIA [None]
  - HAEMATOMA [None]
  - HAEMODYNAMIC INSTABILITY [None]
  - ATRIOVENTRICULAR BLOCK COMPLETE [None]
  - HYPERTENSION [None]
  - HYPOGLYCAEMIA [None]
  - RESPIRATORY FAILURE [None]
  - PLEURAL EFFUSION [None]
  - POSTOPERATIVE WOUND INFECTION [None]
  - RADIUS FRACTURE [None]
  - METABOLIC ENCEPHALOPATHY [None]
  - DEEP VEIN THROMBOSIS [None]
  - ATRIAL FLUTTER [None]
  - EXCORIATION [None]
  - BRADYCARDIA [None]
  - RENAL FAILURE ACUTE [None]
  - FALL [None]
  - HAEMARTHROSIS [None]
